FAERS Safety Report 13701503 (Version 1)
Quarter: 2017Q2

REPORT INFORMATION
  Report Type: Spontaneous
  Country: US (occurrence: US)
  Receive Date: 20170629
  Receipt Date: 20170629
  Transmission Date: 20170830
  Serious: No
  Sender: FDA-Public Use
  Company Number: GXBR2017US001417

PATIENT
  Age: 25 Year
  Sex: Female
  Weight: 49.89 kg

DRUGS (1)
  1. BIMATOPROST. [Suspect]
     Active Substance: BIMATOPROST
     Indication: MADAROSIS
     Dosage: 1 GTT, PER EACH EYE LID (LASH LINE), QHS
     Route: 065
     Dates: start: 20170410, end: 20170412

REACTIONS (5)
  - Urticaria [Recovered/Resolved]
  - Vision blurred [Recovering/Resolving]
  - Instillation site pruritus [Recovered/Resolved]
  - Head discomfort [Recovered/Resolved]
  - Headache [Recovered/Resolved]

NARRATIVE: CASE EVENT DATE: 20170411
